FAERS Safety Report 5193218-4 (Version None)
Quarter: 2006Q4

REPORT INFORMATION
  Report Type: 
  Country: None (occurrence: None)
  Receive Date: 20061228
  Receipt Date: 20060707
  Transmission Date: 20070319
  Serious: No
  Sender: FDA-Public Use
  Company Number: US-GLAXOSMITHKLINE-A0611829A

PATIENT
  Age: 74 Year
  Sex: Male
  Weight: 96.3 kg

DRUGS (1)
  1. AVODART [Suspect]
     Indication: BENIGN PROSTATIC HYPERPLASIA
     Route: 048
     Dates: start: 20060701

REACTIONS (1)
  - PROSTATITIS [None]
